FAERS Safety Report 16686788 (Version 1)
Quarter: 2019Q3

REPORT INFORMATION
  Report Type: Spontaneous
  Country: GB (occurrence: GB)
  Receive Date: 20190809
  Receipt Date: 20190809
  Transmission Date: 20191004
  Serious: Yes (Other)
  Sender: FDA-Public Use
  Company Number: GB-TEVA-2019-GB-1089644

PATIENT
  Age: 55 Year
  Sex: Male
  Weight: 100 kg

DRUGS (18)
  1. ATORVASTATIN [Concomitant]
     Active Substance: ATORVASTATIN
     Dosage: NIGHT
     Dates: start: 20190114
  2. DULOXETINE. [Concomitant]
     Active Substance: DULOXETINE
     Dosage: 2 DOSAGE FORMS
     Dates: start: 20181219
  3. RANITIDINE. [Concomitant]
     Active Substance: RANITIDINE
     Dosage: NIGHT  1 DOSAGE FORMS
     Dates: start: 20181219
  4. PARACETAMOL [Concomitant]
     Active Substance: ACETAMINOPHEN
     Dosage: 8 DOSAGE FORMS
     Dates: start: 20181219
  5. BUPRENORPHINE. [Suspect]
     Active Substance: BUPRENORPHINE
     Dosage: 5 MICROGRAMS/HOUR
     Route: 062
     Dates: start: 20190430
  6. AMLODIPINE [Concomitant]
     Active Substance: AMLODIPINE BESYLATE
     Dosage: 1 DOSAGE FORMS
     Dates: start: 20181219
  7. RISPERIDONE. [Concomitant]
     Active Substance: RISPERIDONE
     Dosage: AT 10PM 1 DOSAGE FORM
     Dates: start: 20181219
  8. METFORMIN [Concomitant]
     Active Substance: METFORMIN HYDROCHLORIDE
     Dosage: 2 DOSAGE FORMS
     Dates: start: 20190114
  9. LEVEMIR [Concomitant]
     Active Substance: INSULIN DETEMIR
     Dosage: USE AS DIRECTED
     Dates: start: 20190701
  10. CANDESARTAN. [Concomitant]
     Active Substance: CANDESARTAN
     Dosage: 1 DOSAGE FORMS
     Dates: start: 20181219
  11. VALPROIC ACID. [Concomitant]
     Active Substance: VALPROIC ACID
     Dosage: 2 DOSAGE FORMS
     Dates: start: 20181219
  12. CARBAMAZEPINE. [Concomitant]
     Active Substance: CARBAMAZEPINE
     Dosage: 400MG MORNING, 200MG LUNCH, 400MG EVENING 3000 ML
     Dates: start: 20181219
  13. LACTULOSE. [Concomitant]
     Active Substance: LACTULOSE
     Dosage: 30 ML
     Dates: start: 20181219
  14. METOCLOPRAMIDE. [Concomitant]
     Active Substance: METOCLOPRAMIDE
     Dosage: THREE TIMES A DAY
     Dates: start: 20181219
  15. NOVORAPID [Concomitant]
     Active Substance: INSULIN ASPART
     Dates: start: 20181219
  16. OMEPRAZOLE. [Concomitant]
     Active Substance: OMEPRAZOLE
     Dosage: 1 DOSAGE FORMS
     Dates: start: 20181219
  17. CARMELLOSE [Concomitant]
     Dosage: USE AS DIRECTED
     Dates: start: 20190313
  18. CLARITHROMYCIN. [Concomitant]
     Active Substance: CLARITHROMYCIN
     Dosage: 1 DOSAGE FORMS
     Dates: start: 20190605, end: 20190612

REACTIONS (2)
  - Application site pruritus [Unknown]
  - Rash macular [Recovered/Resolved]

NARRATIVE: CASE EVENT DATE: 20190704
